FAERS Safety Report 8321713-5 (Version None)
Quarter: 2012Q2

REPORT INFORMATION
  Report Type: 
  Country: None (occurrence: None)
  Receive Date: 20120430
  Receipt Date: 20120424
  Transmission Date: 20120825
  Serious: Yes (Other)
  Sender: FDA-Public Use
  Company Number: US-PFIZER INC-2012101724

PATIENT
  Sex: Male
  Weight: 98.413 kg

DRUGS (2)
  1. LIPITOR [Suspect]
     Indication: HIGH DENSITY LIPOPROTEIN DECREASED
  2. LIPITOR [Suspect]
     Indication: BLOOD CHOLESTEROL INCREASED
     Dosage: 10 MG, 1X/DAY
     Route: 048

REACTIONS (7)
  - MYOCARDIAL INFARCTION [None]
  - PROSTATIC DISORDER [None]
  - MUSCULAR WEAKNESS [None]
  - BLADDER CANCER [None]
  - STAPHYLOCOCCAL INFECTION [None]
  - ARTERIAL OCCLUSIVE DISEASE [None]
  - BLOOD TEST ABNORMAL [None]
